FAERS Safety Report 7960854-9 (Version None)
Quarter: 2011Q4

REPORT INFORMATION
  Report Type: 
  Country: None (occurrence: None)
  Receive Date: 20111207
  Receipt Date: 20111129
  Transmission Date: 20120403
  Serious: Yes (Hospitalization, Other)
  Sender: FDA-Public Use
  Company Number: US-PAR PHARMACEUTICAL, INC-2011SCPR003461

PATIENT

DRUGS (1)
  1. ONDANSETRON [Suspect]
     Indication: PRODUCT USED FOR UNKNOWN INDICATION
     Dosage: MAXIMUM 18 TABLETS FROM A BOTTLE CONTAINING A MIXTURE OF 4 AND 8 MG TABLETS
     Route: 048

REACTIONS (5)
  - TOXICITY TO VARIOUS AGENTS [None]
  - ELECTROCARDIOGRAM QT PROLONGED [None]
  - SINUS TACHYCARDIA [None]
  - FLUSHING [None]
  - MENTAL STATUS CHANGES [None]
